FAERS Safety Report 16968261 (Version 1)
Quarter: 2019Q4

REPORT INFORMATION
  Report Type: Spontaneous
  Country: US (occurrence: US)
  Receive Date: 20191028
  Receipt Date: 20191028
  Transmission Date: 20200122
  Serious: No
  Sender: FDA-Public Use
  Company Number: US-009507513-1910USA012925

PATIENT
  Age: 22 Year
  Sex: Female
  Weight: 56.25 kg

DRUGS (1)
  1. NEXPLANON [Suspect]
     Active Substance: ETONOGESTREL
     Dosage: 1 IMPLANT EVERY 3 YEARS
     Dates: start: 20191002

REACTIONS (3)
  - Device deployment issue [Unknown]
  - Complication associated with device [Unknown]
  - No adverse event [Unknown]

NARRATIVE: CASE EVENT DATE: 20191002
